FAERS Safety Report 13696842 (Version 38)
Quarter: 2023Q1

REPORT INFORMATION
  Report Type: Report from Study
  Country: CO (occurrence: CO)
  Receive Date: 20170628
  Receipt Date: 20230302
  Transmission Date: 20230418
  Serious: Yes (Life-Threatening, Hospitalization, Other)
  Sender: FDA-Public Use
  Company Number: CO-002147023-PHHY2017CO090699

PATIENT

DRUGS (19)
  1. RUXOLITINIB [Suspect]
     Active Substance: RUXOLITINIB
     Indication: Polycythaemia vera
     Dosage: 5 MG, BID
     Route: 048
     Dates: start: 20140314
  2. RUXOLITINIB [Suspect]
     Active Substance: RUXOLITINIB
     Indication: Myelofibrosis
     Dosage: 2 DF, QD (5 MG)
     Route: 048
  3. RUXOLITINIB [Suspect]
     Active Substance: RUXOLITINIB
     Dosage: 15 MG, BID
     Route: 048
     Dates: start: 20180227
  4. RUXOLITINIB [Suspect]
     Active Substance: RUXOLITINIB
     Dosage: 20 MG, QD
     Route: 065
  5. RUXOLITINIB [Suspect]
     Active Substance: RUXOLITINIB
     Dosage: 30 MG, QD
     Route: 048
     Dates: start: 20180327
  6. RUXOLITINIB [Suspect]
     Active Substance: RUXOLITINIB
     Dosage: 20 MG, Q12H
     Route: 048
     Dates: start: 20180327
  7. RUXOLITINIB [Suspect]
     Active Substance: RUXOLITINIB
     Dosage: UNK
     Route: 048
  8. RUXOLITINIB [Suspect]
     Active Substance: RUXOLITINIB
     Dosage: 20 MG, Q12H
     Route: 048
  9. RUXOLITINIB [Suspect]
     Active Substance: RUXOLITINIB
     Dosage: 40 MG, QD
     Route: 048
  10. RUXOLITINIB [Suspect]
     Active Substance: RUXOLITINIB
     Dosage: 20 MG, QD
     Route: 048
  11. RUXOLITINIB [Suspect]
     Active Substance: RUXOLITINIB
     Dosage: UNK, Q12H
     Route: 048
  12. ESOMEPRAZOLE [Suspect]
     Active Substance: ESOMEPRAZOLE
     Indication: Product used for unknown indication
     Dosage: UNK UNK, QD
     Route: 065
  13. LORATADINE [Suspect]
     Active Substance: LORATADINE
     Indication: Product used for unknown indication
     Dosage: UNK
     Route: 065
  14. ESCITALOPRAM [Suspect]
     Active Substance: ESCITALOPRAM OXALATE
     Indication: Depression
     Dosage: 10 MG, QD
     Route: 048
  15. DESLORATADINE [Suspect]
     Active Substance: DESLORATADINE
     Indication: Product used for unknown indication
     Dosage: UNK, QD (1)
     Route: 065
  16. HYDROXYUREA [Suspect]
     Active Substance: HYDROXYUREA
     Indication: Product used for unknown indication
     Dosage: UNK
     Route: 065
  17. ACETAMINOPHEN\BUTALBITAL [Concomitant]
     Active Substance: ACETAMINOPHEN\BUTALBITAL
     Indication: Bone pain
     Dosage: UNK
     Route: 065
  18. ASPIRIN [Concomitant]
     Active Substance: ASPIRIN
     Indication: Product used for unknown indication
     Dosage: UNK
     Route: 065
  19. DOLEX [FURPROFEN] [Concomitant]
     Indication: Product used for unknown indication
     Dosage: UNK
     Route: 065

REACTIONS (66)
  - Psychiatric symptom [Unknown]
  - Pain in extremity [Unknown]
  - Agitation [Unknown]
  - Hypersensitivity [Not Recovered/Not Resolved]
  - Anal haemorrhage [Recovered/Resolved]
  - Anxiety [Unknown]
  - Gastrointestinal haemorrhage [Unknown]
  - Skin haemorrhage [Recovered/Resolved]
  - Chills [Unknown]
  - Chronic sinusitis [Unknown]
  - Joint range of motion decreased [Unknown]
  - Gait disturbance [Unknown]
  - Muscle spasms [Unknown]
  - Cystitis [Unknown]
  - Depression [Unknown]
  - Abnormal behaviour [Unknown]
  - Dizziness [Unknown]
  - Vision blurred [Unknown]
  - Fall [Unknown]
  - General physical health deterioration [Unknown]
  - Heart rate increased [Unknown]
  - Feeling abnormal [Unknown]
  - Chest discomfort [Unknown]
  - Asthenia [Recovered/Resolved]
  - Arthritis [Unknown]
  - Influenza [Unknown]
  - Fungal infection [Unknown]
  - Gastric ulcer [Unknown]
  - Illness [Unknown]
  - Haemorrhage [Unknown]
  - Splenomegaly [Not Recovered/Not Resolved]
  - Platelet count increased [Unknown]
  - Spleen disorder [Unknown]
  - Insomnia [Unknown]
  - Poisoning [Unknown]
  - Sleep disorder [Unknown]
  - Pruritus [Unknown]
  - Decreased appetite [Unknown]
  - Peripheral swelling [Unknown]
  - Leukaemia [Unknown]
  - Dehydration [Unknown]
  - Polycythaemia vera [Unknown]
  - Amnesia [Unknown]
  - Mouth haemorrhage [Recovered/Resolved]
  - Bone pain [Not Recovered/Not Resolved]
  - Arthralgia [Unknown]
  - Viral infection [Unknown]
  - Inappropriate schedule of product administration [Unknown]
  - Rectal haemorrhage [Unknown]
  - Renal colic [Unknown]
  - Rheumatic disorder [Unknown]
  - Dysstasia [Unknown]
  - Anger [Unknown]
  - Boredom [Unknown]
  - Dyspnoea [Unknown]
  - Skin disorder [Recovering/Resolving]
  - Rash [Unknown]
  - Sneezing [Unknown]
  - Hyperhidrosis [Unknown]
  - Tachycardia [Unknown]
  - Terminal state [Unknown]
  - Thrombocytopenia [Unknown]
  - Fatigue [Unknown]
  - Tuberculosis [Recovered/Resolved]
  - Vomiting [Unknown]
  - Weight decreased [Unknown]

NARRATIVE: CASE EVENT DATE: 20160914
